FAERS Safety Report 4389149-X (Version None)
Quarter: 2004Q2

REPORT INFORMATION
  Report Type: 
  Country: None (occurrence: None)
  Receive Date: 20040628
  Receipt Date: 20040614
  Transmission Date: 20050107
  Serious: Yes (Hospitalization, Disabling)
  Sender: FDA-Public Use
  Company Number: 2004PK01077

PATIENT
  Sex: Female

DRUGS (1)
  1. NAROPIN [Suspect]
     Indication: ANAESTHESIA

REACTIONS (6)
  - ANTERIOR SPINAL ARTERY SYNDROME [None]
  - CARDIOVASCULAR DISORDER [None]
  - CHEST PAIN [None]
  - PARAPLEGIA [None]
  - POST PROCEDURAL COMPLICATION [None]
  - RESPIRATORY FAILURE [None]
